FAERS Safety Report 12650903 (Version 1)
Quarter: 2016Q3

REPORT INFORMATION
  Report Type: Spontaneous
  Country: US (occurrence: US)
  Receive Date: 20160815
  Receipt Date: 20160815
  Transmission Date: 20161109
  Serious: No
  Sender: FDA-Public Use
  Company Number: US-BEH-2016072521

PATIENT
  Sex: Female
  Weight: 105.44 kg

DRUGS (18)
  1. HIZENTRA [Suspect]
     Active Substance: HUMAN IMMUNOGLOBULIN G
     Indication: HYPOGAMMAGLOBULINAEMIA
     Dosage: 12 G, QW
     Route: 058
     Dates: start: 20150916
  2. ESTROVEN [Concomitant]
     Active Substance: DIETARY SUPPLEMENT
  3. DILAUDID [Concomitant]
     Active Substance: HYDROMORPHONE HYDROCHLORIDE
  4. AZITHROMYCIN ANHYDROUS. [Concomitant]
     Active Substance: AZITHROMYCIN ANHYDROUS
  5. EPIPEN [Concomitant]
     Active Substance: EPINEPHRINE
  6. LEVOTHYROXINE. [Concomitant]
     Active Substance: LEVOTHYROXINE
  7. NIACIN. [Concomitant]
     Active Substance: NIACIN
  8. VITAMIN D3 [Concomitant]
     Active Substance: CHOLECALCIFEROL
  9. VITAMIN C [Concomitant]
     Active Substance: ASCORBIC ACID
  10. PERCOCET                           /00446701/ [Concomitant]
     Active Substance: ACETAMINOPHEN\OXYCODONE HYDROCHLORIDE\OXYCODONE TEREPHTHALATE
  11. LIDOCAINE. [Concomitant]
     Active Substance: LIDOCAINE
  12. PROZAC [Concomitant]
     Active Substance: FLUOXETINE HYDROCHLORIDE
  13. MULTIVITAMINS [Concomitant]
     Active Substance: VITAMINS
  14. ALPRAZOLAM. [Concomitant]
     Active Substance: ALPRAZOLAM
  15. ACETAMINOPHEN. [Concomitant]
     Active Substance: ACETAMINOPHEN
  16. CALCIUM [Concomitant]
     Active Substance: CALCIUM
  17. GLUCOSAMINE AND CHONDROITIN [Concomitant]
     Active Substance: CHONDROITIN SULFATE (BOVINE)\GLUCOSAMINE HYDROCHLORIDE
  18. LUTEIN                             /01638501/ [Concomitant]
     Active Substance: LUTEIN

REACTIONS (1)
  - Feeling abnormal [Unknown]
